FAERS Safety Report 6322712-5 (Version None)
Quarter: 2009Q3

REPORT INFORMATION
  Report Type: 
  Country: None (occurrence: None)
  Receive Date: 20090824
  Receipt Date: 20090309
  Transmission Date: 20100115
  Serious: No
  Sender: FDA-Public Use
  Company Number: US-ABBOTT-09P-163-0561728-00

PATIENT
  Sex: Female

DRUGS (9)
  1. NIASPAN [Suspect]
     Indication: DRUG USE FOR UNKNOWN INDICATION
     Dates: start: 20090201
  2. DILTIAZEM [Concomitant]
     Indication: DRUG USE FOR UNKNOWN INDICATION
  3. M.V.I. [Concomitant]
     Indication: DRUG USE FOR UNKNOWN INDICATION
  4. VYTORIN [Concomitant]
     Indication: DRUG USE FOR UNKNOWN INDICATION
  5. SINGULAIR [Concomitant]
     Indication: DRUG USE FOR UNKNOWN INDICATION
  6. HYZAAR [Concomitant]
     Indication: DRUG USE FOR UNKNOWN INDICATION
  7. CALCIUM TABS [Concomitant]
     Indication: DRUG USE FOR UNKNOWN INDICATION
  8. ASPIRIN [Concomitant]
     Indication: DRUG USE FOR UNKNOWN INDICATION
  9. INSULIN [Concomitant]
     Indication: DRUG USE FOR UNKNOWN INDICATION
     Dosage: 70/30

REACTIONS (3)
  - BLOOD GLUCOSE INCREASED [None]
  - FLUSHING [None]
  - HYPERHIDROSIS [None]
